FAERS Safety Report 5080343-1 (Version None)
Quarter: 2006Q3

REPORT INFORMATION
  Report Type: 
  Country: None (occurrence: None)
  Receive Date: 20060814
  Receipt Date: 20060814
  Transmission Date: 20061208
  Serious: Yes (Other)
  Sender: FDA-Public Use
  Company Number: None

PATIENT
  Age: 48 Year
  Sex: Female
  Weight: 65.7716 kg

DRUGS (2)
  1. HYOSCYAMINE 0.375 AMIDE [Suspect]
     Indication: ABDOMINAL PAIN UPPER
     Dosage: 00.375 THREE TIMES A DAY
     Dates: start: 20060809, end: 20060812
  2. HYOSCYAMINE 0.375 AMIDE [Suspect]
     Indication: LIVER DISORDER
     Dosage: 00.375 THREE TIMES A DAY
     Dates: start: 20060809, end: 20060812

REACTIONS (7)
  - DRUG INEFFECTIVE [None]
  - DRY EYE [None]
  - EYE IRRITATION [None]
  - EYE PAIN [None]
  - FEELING ABNORMAL [None]
  - RASH [None]
  - VISION BLURRED [None]
